FAERS Safety Report 10004751 (Version 3)
Quarter: 2014Q2

REPORT INFORMATION
  Report Type: Spontaneous
  Country: US (occurrence: US)
  Receive Date: 20140312
  Receipt Date: 20140505
  Transmission Date: 20141212
  Serious: Yes (Other)
  Sender: FDA-Public Use
  Company Number: US-JNJFOC-20140303881

PATIENT
  Sex: Male
  Weight: 56.7 kg

DRUGS (11)
  1. REMICADE [Suspect]
     Indication: RHEUMATOID ARTHRITIS
     Dosage: START DATE APPROXIMATELY 8 YEARS PRIOR
     Route: 042
     Dates: end: 2013
  2. REMICADE [Suspect]
     Indication: RHEUMATOID ARTHRITIS
     Dosage: START DATE APPROXIMATELY 8 YEARS PRIOR
     Route: 042
     Dates: start: 2013
  3. FOLIC ACID [Concomitant]
     Indication: RHEUMATOID ARTHRITIS
     Dosage: 1X WEEK
     Route: 048
  4. VITAMIN [Concomitant]
     Indication: BODY HEIGHT DECREASED
     Route: 048
  5. ANTITHYROID DRUG, UNSPECIFIED [Concomitant]
     Indication: THYROID DISORDER
     Route: 048
  6. PAIN MEDICATION NOS [Concomitant]
     Indication: PAIN
     Route: 048
  7. CELEBREX [Concomitant]
     Indication: INFLAMMATION
     Route: 048
  8. GABAPENTIN [Concomitant]
     Indication: PAIN
     Dosage: SINCE 8 YEARS
     Route: 048
  9. TRAMADOL [Concomitant]
     Indication: ARTHRALGIA
     Route: 065
  10. LEVOXYL [Concomitant]
     Indication: HYPOTHYROIDISM
     Route: 065
  11. METHOTREXATE [Concomitant]
     Route: 065

REACTIONS (9)
  - Finger deformity [Recovered/Resolved]
  - Oral surgery [Unknown]
  - Foot deformity [Not Recovered/Not Resolved]
  - Arthropathy [Recovered/Resolved]
  - Arthropathy [Recovered/Resolved]
  - Prostatic disorder [Not Recovered/Not Resolved]
  - Abnormal loss of weight [Not Recovered/Not Resolved]
  - Body height decreased [Not Recovered/Not Resolved]
  - Memory impairment [Not Recovered/Not Resolved]
